FAERS Safety Report 15959559 (Version 1)
Quarter: 2019Q1

REPORT INFORMATION
  Report Type: Spontaneous
  Country: CA (occurrence: CA)
  Receive Date: 20190214
  Receipt Date: 20190214
  Transmission Date: 20190417
  Serious: Yes (Disabling)
  Sender: FDA-Public Use
  Company Number: CA-TEVA-2019-CA-1012514

PATIENT
  Age: 74 Year
  Sex: Female

DRUGS (3)
  1. OLMESARTAN [Suspect]
     Active Substance: OLMESARTAN
     Indication: BLOOD PRESSURE MANAGEMENT
     Dosage: 20 MILLIGRAM DAILY;
     Route: 048
  2. EZETROL [Concomitant]
     Active Substance: EZETIMIBE
  3. ATENOLOL TABLETS, BP [Concomitant]
     Active Substance: ATENOLOL

REACTIONS (5)
  - Renal impairment [Recovered/Resolved]
  - Blood pressure inadequately controlled [Recovered/Resolved]
  - Condition aggravated [Recovered/Resolved]
  - Diarrhoea [Recovered/Resolved]
  - Glomerular filtration rate abnormal [Recovered/Resolved]
